FAERS Safety Report 10232326 (Version 1)
Quarter: 2014Q2

REPORT INFORMATION
  Report Type: Spontaneous
  Country: US (occurrence: None)
  Receive Date: 20140610
  Receipt Date: 20140610
  Transmission Date: 20141212
  Serious: Yes (Other)
  Sender: FDA-Public Use
  Company Number: None

PATIENT
  Age: 10 Year
  Sex: Male
  Weight: 29.03 kg

DRUGS (4)
  1. LAMICTAL [Suspect]
     Indication: AFFECTIVE DISORDER
     Dosage: ONE TAB, BID, ORAL
     Route: 048
  2. VYVANSE [Concomitant]
  3. FLUOXETINE [Concomitant]
  4. MELATONIN [Concomitant]

REACTIONS (1)
  - Tic [None]
